FAERS Safety Report 8850237 (Version 1)
Quarter: 2012Q4

REPORT INFORMATION
  Report Type: 
  Country: IT (occurrence: IT)
  Receive Date: 20121019
  Receipt Date: 20121019
  Transmission Date: 20130627
  Serious: Yes (Hospitalization)
  Sender: FDA-Public Use
  Company Number: IT-BAYER-2012-109586

PATIENT
  Age: 73 Year
  Sex: Male

DRUGS (9)
  1. CARDIOASPIRIN [Suspect]
     Dosage: 100 mg, QD
     Route: 048
     Dates: start: 20120418, end: 20120422
  2. FRAGMIN [Suspect]
     Indication: THROMBOSIS PROPHYLAXIS
     Dosage: Daily dose 200 iu/kg
     Route: 058
     Dates: start: 20120418, end: 20120422
  3. LASIX [Concomitant]
  4. LANOXIN [Concomitant]
     Route: 048
  5. LANOXIN [Concomitant]
     Dosage: Daily dose .125 mg
  6. CRESTOR [Concomitant]
     Route: 048
  7. ADALAT [Concomitant]
     Route: 048
  8. TRIATEC [Concomitant]
     Route: 048
  9. TRIATEC [Concomitant]
     Dosage: Daily dose 5 mg

REACTIONS (2)
  - Loss of consciousness [Unknown]
  - Epistaxis [Unknown]
